FAERS Safety Report 10064541 (Version 1)
Quarter: 2014Q2

REPORT INFORMATION
  Report Type: Spontaneous
  Country: US (occurrence: None)
  Receive Date: 20140407
  Receipt Date: 20140407
  Transmission Date: 20141212
  Serious: Yes (Other)
  Sender: FDA-Public Use
  Company Number: None

PATIENT
  Age: 43 Year
  Sex: Female
  Weight: 63.5 kg

DRUGS (1)
  1. FLUCONAZOLE [Suspect]
     Indication: VULVOVAGINAL MYCOTIC INFECTION
     Dosage: 1 PILL BY MOUTH FOR SEVEN DAYS ONCE DAILY TAKEN BY MOUTB
     Route: 048
     Dates: start: 20140403, end: 20140404

REACTIONS (4)
  - Influenza like illness [None]
  - Arthralgia [None]
  - Wheezing [None]
  - Myalgia [None]
